FAERS Safety Report 9517479 (Version 1)
Quarter: 2013Q3

REPORT INFORMATION
  Report Type: Spontaneous
  Country: FI (occurrence: FI)
  Receive Date: 20130911
  Receipt Date: 20130911
  Transmission Date: 20140515
  Serious: Yes (Hospitalization, Other)
  Sender: FDA-Public Use
  Company Number: FI-MYLANLABS-2013S1019677

PATIENT
  Sex: 0

DRUGS (2)
  1. OLANZAPINE [Suspect]
     Indication: PRODUCT USED FOR UNKNOWN INDICATION
  2. LORAZEPAM [Suspect]
     Indication: CATATONIA

REACTIONS (10)
  - Apathy [Recovering/Resolving]
  - Agitation [Recovering/Resolving]
  - Stupor [Recovering/Resolving]
  - Tachypnoea [Recovering/Resolving]
  - Body temperature increased [Recovering/Resolving]
  - Stereotypy [Recovering/Resolving]
  - Negativism [Recovering/Resolving]
  - Pulmonary embolism [Recovering/Resolving]
  - Thrombosis [Recovering/Resolving]
  - Confusional state [Recovering/Resolving]
